FAERS Safety Report 6647500-1 (Version None)
Quarter: 2010Q1

REPORT INFORMATION
  Report Type: 
  Country: None (occurrence: None)
  Receive Date: 20100323
  Receipt Date: 20100317
  Transmission Date: 20100710
  Serious: Yes (Other)
  Sender: FDA-Public Use
  Company Number: GB-ROCHE-692006

PATIENT
  Age: 20 Year
  Sex: Female

DRUGS (5)
  1. TAMIFLU [Suspect]
     Indication: H1N1 INFLUENZA
     Route: 065
     Dates: start: 20091101, end: 20091101
  2. KEPPRA [Concomitant]
  3. LAMICTAL CD [Concomitant]
  4. CITALOPRAM HYDROBROMIDE [Concomitant]
  5. LYRICA [Concomitant]

REACTIONS (1)
  - EPILEPSY [None]
